FAERS Safety Report 5921285-6 (Version None)
Quarter: 2008Q4

REPORT INFORMATION
  Report Type: 
  Country: None (occurrence: None)
  Receive Date: 20081014
  Receipt Date: 20080926
  Transmission Date: 20090506
  Serious: Yes (Hospitalization)
  Sender: FDA-Public Use
  Company Number: 8037565

PATIENT
  Age: 16 Year
  Sex: Female

DRUGS (1)
  1. XYZAL [Suspect]
     Indication: HYPERSENSITIVITY
     Dosage: 50 MG ONCE PO
     Route: 048

REACTIONS (2)
  - FATIGUE [None]
  - INTENTIONAL OVERDOSE [None]
